FAERS Safety Report 7304430-X (Version None)
Quarter: 2011Q1

REPORT INFORMATION
  Report Type: 
  Country: None (occurrence: None)
  Receive Date: 20110221
  Receipt Date: 20110211
  Transmission Date: 20110831
  Serious: Yes (Hospitalization, Other)
  Sender: FDA-Public Use
  Company Number: US-ASTRAZENECA-2011SE08342

PATIENT
  Sex: Female

DRUGS (7)
  1. KENALOG [Suspect]
     Route: 065
  2. SEROQUEL [Suspect]
     Route: 048
     Dates: start: 20110101
  3. LAMICTAL [Concomitant]
  4. WELLBUTRIN [Concomitant]
  5. CYMBALTA [Concomitant]
  6. SEROQUEL [Suspect]
     Indication: BIPOLAR DISORDER
     Route: 048
     Dates: start: 20090101
  7. LEXAPRO [Concomitant]

REACTIONS (13)
  - PALPITATIONS [None]
  - SURGERY [None]
  - DRUG ABUSE [None]
  - BLADDER DYSFUNCTION [None]
  - MONOPLEGIA [None]
  - ABNORMAL DREAMS [None]
  - INTESTINAL FUNCTIONAL DISORDER [None]
  - SCIATIC NERVE INJURY [None]
  - HYPOKINESIA [None]
  - INSOMNIA [None]
  - PANIC REACTION [None]
  - ABASIA [None]
  - WRONG TECHNIQUE IN DRUG USAGE PROCESS [None]
